FAERS Safety Report 9640445 (Version 1)
Quarter: 2013Q4

REPORT INFORMATION
  Report Type: Spontaneous
  Country: US (occurrence: US)
  Receive Date: 20131023
  Receipt Date: 20131023
  Transmission Date: 20140711
  Serious: No
  Sender: FDA-Public Use
  Company Number: US-009507513-1310USA010558

PATIENT
  Sex: Male

DRUGS (1)
  1. COPPERTONE SPORT LOTION SPF 30 [Suspect]
     Indication: PRODUCT USED FOR UNKNOWN INDICATION
     Dosage: UNK, EVERY 20 MINUTES
     Route: 061

REACTIONS (1)
  - Sunburn [Unknown]
